FAERS Safety Report 4993631-1 (Version None)
Quarter: 2006Q2

REPORT INFORMATION
  Report Type: 
  Country: None (occurrence: None)
  Receive Date: 20060505
  Receipt Date: 20060425
  Transmission Date: 20061013
  Serious: Yes (Hospitalization)
  Sender: FDA-Public Use
  Company Number: PHEH2006US05418

PATIENT
  Age: 91 Year
  Sex: Female

DRUGS (4)
  1. STALEVO 100 [Suspect]
     Indication: PARKINSON'S DISEASE
     Dosage: 150 MG, QD
     Route: 048
     Dates: start: 20051201
  2. OXYBUTYNIN [Concomitant]
  3. LEXAPRO [Concomitant]
  4. ARICEPT [Concomitant]

REACTIONS (3)
  - DEPRESSED LEVEL OF CONSCIOUSNESS [None]
  - HALLUCINATION [None]
  - UNRESPONSIVE TO VERBAL STIMULI [None]
